FAERS Safety Report 13983746 (Version 3)
Quarter: 2017Q3

REPORT INFORMATION
  Report Type: Spontaneous
  Country: CN (occurrence: CN)
  Receive Date: 20170918
  Receipt Date: 20170929
  Transmission Date: 20171128
  Serious: Yes (Other)
  Sender: FDA-Public Use
  Company Number: CN-009507513-1709CHN003775

PATIENT
  Age: 28 Year
  Sex: Female

DRUGS (1)
  1. MARVELON [Suspect]
     Active Substance: DESOGESTREL\ETHINYL ESTRADIOL
     Dosage: UNK
     Route: 048

REACTIONS (3)
  - Inappropriate schedule of drug administration [Unknown]
  - Abnormal withdrawal bleeding [Unknown]
  - Placental disorder [Unknown]
